FAERS Safety Report 19657615 (Version 4)
Quarter: 2021Q4

REPORT INFORMATION
  Report Type: Spontaneous
  Country: AU (occurrence: AU)
  Receive Date: 20210804
  Receipt Date: 20211223
  Transmission Date: 20220303
  Serious: Yes (Other)
  Sender: FDA-Public Use
  Company Number: AU-GILEAD-2021-0542983

PATIENT
  Sex: Female

DRUGS (2)
  1. TRODELVY [Suspect]
     Active Substance: SACITUZUMAB GOVITECAN-HZIY
     Indication: Triple negative breast cancer
     Route: 065
  2. TRODELVY [Suspect]
     Active Substance: SACITUZUMAB GOVITECAN-HZIY
     Dosage: UNK 50 PERCENT RDUCED DOSSE
     Route: 065

REACTIONS (4)
  - Large intestine perforation [Unknown]
  - Peritonitis [Unknown]
  - Neutropenic colitis [Not Recovered/Not Resolved]
  - Mouth ulceration [Unknown]
